FAERS Safety Report 11178441 (Version 1)
Quarter: 2015Q2

REPORT INFORMATION
  Report Type: Spontaneous
  Country: US (occurrence: US)
  Receive Date: 20150610
  Receipt Date: 20150610
  Transmission Date: 20150821
  Serious: Yes (Hospitalization)
  Sender: FDA-Public Use
  Company Number: US-BANPHARM-20153958

PATIENT
  Age: 47 Year
  Sex: Female

DRUGS (1)
  1. IBUPROFEN UNKNOWN PRODUCT [Suspect]
     Active Substance: IBUPROFEN
     Indication: HEADACHE
     Dosage: DF 800 MG, 14-56 TABLETS, WEEKLY,

REACTIONS (2)
  - Hyperammonaemia [Recovering/Resolving]
  - Renal tubular acidosis [Recovering/Resolving]
